FAERS Safety Report 18645764 (Version 1)
Quarter: 2020Q4

REPORT INFORMATION
  Report Type: Spontaneous
  Country: US (occurrence: US)
  Receive Date: 20201222
  Receipt Date: 20201222
  Transmission Date: 20210114
  Serious: No
  Sender: FDA-Public Use
  Company Number: US-JNJFOC-20201225986

PATIENT
  Age: 76 Year
  Sex: Female

DRUGS (2)
  1. STELARA [Suspect]
     Active Substance: USTEKINUMAB
  2. STELARA [Suspect]
     Active Substance: USTEKINUMAB
     Indication: PRODUCT USED FOR UNKNOWN INDICATION
     Route: 058
     Dates: start: 20201006

REACTIONS (7)
  - Flushing [Unknown]
  - Tremor [Unknown]
  - Irritability [Unknown]
  - Headache [Unknown]
  - Anxiety [Unknown]
  - Burning sensation [Unknown]
  - Bursitis [Unknown]

NARRATIVE: CASE EVENT DATE: 202012
